FAERS Safety Report 7624239-7 (Version None)
Quarter: 2011Q3

REPORT INFORMATION
  Report Type: 
  Country: None (occurrence: None)
  Receive Date: 20110720
  Receipt Date: 20110714
  Transmission Date: 20111222
  Serious: Yes (Hospitalization)
  Sender: FDA-Public Use
  Company Number: PL-BRISTOL-MYERS SQUIBB COMPANY-15208143

PATIENT
  Age: 58 Year
  Sex: Male
  Weight: 46 kg

DRUGS (3)
  1. FLUOROURACIL [Suspect]
     Indication: HEAD AND NECK CANCER
     Dosage: DAY 1 - 4 OF CYCLE 1560MG/M2 RECENT INF(4TH):26JUN10
     Route: 042
     Dates: start: 20100420, end: 20100626
  2. CISPLATIN [Suspect]
     Indication: HEAD AND NECK CANCER
     Dosage: RECENT INF(4TH):22JUN10
     Route: 042
     Dates: start: 20100420, end: 20100622
  3. CETUXIMAB [Suspect]
     Indication: HEAD AND NECK CANCER
     Dosage: RECENT INF(12TH):22JUN10 5MG/ML
     Route: 042
     Dates: start: 20100420, end: 20100622

REACTIONS (1)
  - ANAEMIA [None]
